FAERS Safety Report 19569780 (Version 2)
Quarter: 2021Q3

REPORT INFORMATION
  Report Type: Report from Study
  Country: ES (occurrence: ES)
  Receive Date: 20210716
  Receipt Date: 20210720
  Transmission Date: 20211014
  Serious: Yes (Hospitalization)
  Sender: FDA-Public Use
  Company Number: ES-PFIZER INC-2021882759

PATIENT
  Age: 39 Year
  Sex: Female
  Weight: 65.5 kg

DRUGS (9)
  1. PRIMPERAN [Concomitant]
     Active Substance: METOCLOPRAMIDE HYDROCHLORIDE
     Indication: VOMITING
     Dosage: 10 MILLIGRAM, 3 TIMES DAILY, SOLUTION
     Route: 048
     Dates: start: 20210526
  2. MOVICOL PLAIN [Concomitant]
     Active Substance: POLYETHYLENE GLYCOL 3350\POTASSIUM CHLORIDE\SODIUM BICARBONATE\SODIUM CHLORIDE
     Indication: CONSTIPATION
     Dosage: 5 MILLILITER, 3 TIMES DAILY, SOLUTION
     Route: 048
     Dates: start: 20210526
  3. OLANZAPINE. [Concomitant]
     Active Substance: OLANZAPINE
     Indication: VOMITING
     Dosage: 10 MILLIGRAM, TWICE DAILY, TABLET
     Route: 048
     Dates: start: 20210526
  4. ONDASETRON [ONDANSETRON] [Concomitant]
     Active Substance: ONDANSETRON
     Indication: VOMITING
     Dosage: 4 MILLIGRAM, 3 TIMES DAILY, TABLET
     Route: 048
     Dates: start: 20210526
  5. ZEN?003694. [Suspect]
     Active Substance: ZEN-003694
     Indication: TRIPLE NEGATIVE BREAST CANCER
     Dosage: 48 MILLIGRAM, DAILY
     Route: 048
     Dates: start: 20210514
  6. HIDROALTESONA [Concomitant]
     Active Substance: HYDROCORTISONE
     Indication: ADRENAL INSUFFICIENCY
     Dosage: 20 MILLIGRAM, DAILY, TABLET
     Route: 048
     Dates: start: 20190701
  7. HYDROCORTISONE SODIUM PHOSPHATE [Concomitant]
     Active Substance: HYDROCORTISONE SODIUM PHOSPHATE
     Indication: VOMITING
     Dosage: 100 MILLIGRAM, ONCE, SOLUTION
     Route: 042
     Dates: start: 20210521, end: 20210521
  8. PREDNISONE. [Concomitant]
     Active Substance: PREDNISONE
     Indication: VOMITING
     Dosage: 30 MILLIGRAM, DAILY, TABLET
     Route: 048
     Dates: start: 20210526
  9. TALAZOPARIB. [Suspect]
     Active Substance: TALAZOPARIB
     Indication: TRIPLE NEGATIVE BREAST CANCER
     Dosage: 0.75 MILLIGRAM, DAILY
     Route: 048
     Dates: start: 20210514

REACTIONS (2)
  - Vomiting [Not Recovered/Not Resolved]
  - Intermenstrual bleeding [Not Recovered/Not Resolved]

NARRATIVE: CASE EVENT DATE: 20210702
